FAERS Safety Report 16409806 (Version 1)
Quarter: 2019Q2

REPORT INFORMATION
  Report Type: Spontaneous
  Country: US (occurrence: US)
  Receive Date: 20190610
  Receipt Date: 20190610
  Transmission Date: 20190711
  Serious: No
  Sender: FDA-Public Use
  Company Number: US-PFIZER INC-2019246258

PATIENT
  Age: 63 Year
  Sex: Female
  Weight: 123.5 kg

DRUGS (1)
  1. DESVENLAFAXINE SUCCINATE MONOHYDRATE [Suspect]
     Active Substance: DESVENLAFAXINE SUCCINATE
     Dosage: 1 DF, DAILY (1 TAB PO (PER ORAL) DAILY)
     Route: 048

REACTIONS (2)
  - Fatigue [Unknown]
  - Malaise [Unknown]
